FAERS Safety Report 10021144 (Version 1)
Quarter: 2014Q1

REPORT INFORMATION
  Report Type: Spontaneous
  Country: US (occurrence: US)
  Receive Date: 20140319
  Receipt Date: 20140319
  Transmission Date: 20141002
  Serious: No
  Sender: FDA-Public Use
  Company Number: US-PFIZER INC-2014076601

PATIENT
  Age: 62 Year
  Sex: Female
  Weight: 99.8 kg

DRUGS (2)
  1. LEVOTHYROXINE SODIUM [Suspect]
     Indication: THYROID DISORDER
     Dosage: UNK
  2. GLIBURIDE/METFORMIN HYDROCHLORIDE [Concomitant]
     Indication: DIABETES MELLITUS
     Dosage: GLIBURIDE 1.25MG/METFORMIN HCL 250 MG,2X/DAY

REACTIONS (1)
  - Drug ineffective [Unknown]
